FAERS Safety Report 12693778 (Version 1)
Quarter: 2016Q3

REPORT INFORMATION
  Report Type: Spontaneous
  Country: US (occurrence: US)
  Receive Date: 20160829
  Receipt Date: 20160829
  Transmission Date: 20161109
  Serious: No
  Sender: FDA-Public Use
  Company Number: US-PFIZER INC-2016207201

PATIENT
  Sex: Female

DRUGS (2)
  1. ATENOLOL. [Concomitant]
     Active Substance: ATENOLOL
     Indication: ARRHYTHMIA
     Dosage: 50 MG, 1X/DAY
  2. EPINEPHRINE. [Suspect]
     Active Substance: EPINEPHRINE
     Dosage: UNK

REACTIONS (2)
  - Drug hypersensitivity [Unknown]
  - Tachycardia [Unknown]
